FAERS Safety Report 8358782-2 (Version None)
Quarter: 2012Q2

REPORT INFORMATION
  Report Type: 
  Country: None (occurrence: None)
  Receive Date: 20120514
  Receipt Date: 20120502
  Transmission Date: 20120825
  Serious: Yes (Hospitalization)
  Sender: FDA-Public Use
  Company Number: DE-ELI_LILLY_AND_COMPANY-DE201202005016

PATIENT
  Sex: Female

DRUGS (9)
  1. IBUPROFEN [Concomitant]
     Dosage: 3 DF, QD
  2. HYDROCHLOROTHIAZIDE [Concomitant]
     Dosage: 1 DF, QD
  3. TORSEMIDE [Concomitant]
     Dosage: 2 DF, QD
  4. HYDROMORPHONE HCL [Concomitant]
  5. RAMIPRIL [Concomitant]
  6. FORTEO [Suspect]
     Indication: OSTEOPOROSIS
     Dosage: UNK, QD
     Route: 058
     Dates: start: 20120202
  7. MARCUMAR [Concomitant]
  8. METOPROLOL SUCCINATE [Concomitant]
  9. AMIODARONE HCL [Concomitant]

REACTIONS (3)
  - FLUID RETENTION [None]
  - PALPITATIONS [None]
  - OEDEMA PERIPHERAL [None]
